FAERS Safety Report 7861061-0 (Version None)
Quarter: 2011Q4

REPORT INFORMATION
  Report Type: 
  Country: None (occurrence: None)
  Receive Date: 20111027
  Receipt Date: 20111017
  Transmission Date: 20120403
  Serious: Yes (Death)
  Sender: FDA-Public Use
  Company Number: JP-GLAXOSMITHKLINE-B0757115A

PATIENT
  Sex: Female
  Weight: 50 kg

DRUGS (5)
  1. MICONAZOLE [Concomitant]
     Dosage: 5G PER DAY
     Route: 048
     Dates: start: 20101213, end: 20101220
  2. PROMACTA [Suspect]
     Indication: IDIOPATHIC THROMBOCYTOPENIC PURPURA
     Dosage: 12.5MG PER DAY
     Route: 048
     Dates: start: 20101214, end: 20101223
  3. OMEPRAZOLE [Concomitant]
     Dosage: 40MG PER DAY
     Route: 042
     Dates: end: 20101223
  4. GANCICLOVIR [Concomitant]
     Dosage: 250MG PER DAY
     Route: 042
     Dates: start: 20101217, end: 20101221
  5. FUROSEMIDE [Concomitant]
     Dosage: 20MG PER DAY
     Route: 042
     Dates: end: 20101223

REACTIONS (2)
  - PNEUMONIA [None]
  - ACUTE RESPIRATORY FAILURE [None]
